FAERS Safety Report 7215226-1 (Version None)
Quarter: 2011Q1

REPORT INFORMATION
  Report Type: 
  Country: None (occurrence: None)
  Receive Date: 20110107
  Receipt Date: 20101109
  Transmission Date: 20110831
  Serious: No
  Sender: FDA-Public Use
  Company Number: A0891420A

PATIENT
  Age: 73 Year
  Sex: Female

DRUGS (8)
  1. VICTOZA [Concomitant]
  2. METFORMIN [Concomitant]
  3. ACCUPRIL [Concomitant]
  4. DITROPAN [Concomitant]
  5. LOVAZA [Suspect]
     Indication: BLOOD CHOLESTEROL INCREASED
     Route: 048
  6. CELEBREX [Concomitant]
  7. CYMBALTA [Concomitant]
  8. SPIRONOLACTONE [Concomitant]

REACTIONS (2)
  - BLOOD CHOLESTEROL INCREASED [None]
  - DRUG INEFFECTIVE [None]
